FAERS Safety Report 6490305-5 (Version None)
Quarter: 2009Q4

REPORT INFORMATION
  Report Type: 
  Country: None (occurrence: None)
  Receive Date: 20091210
  Receipt Date: 20091210
  Transmission Date: 20100525
  Serious: No
  Sender: FDA-Public Use
  Company Number: None

PATIENT
  Age: 44 Year
  Sex: Female
  Weight: 86.1834 kg

DRUGS (3)
  1. NASONEX [Suspect]
     Indication: HYPERSENSITIVITY
     Dosage: TWO SPRAYS ONCE A DAY INHAL
     Route: 055
     Dates: start: 20090902, end: 20091127
  2. NASONEX [Suspect]
     Indication: RHINITIS
     Dosage: TWO SPRAYS ONCE A DAY INHAL
     Route: 055
     Dates: start: 20090902, end: 20091127
  3. NASONEX [Suspect]
     Indication: SINUSITIS
     Dosage: TWO SPRAYS ONCE A DAY INHAL
     Route: 055
     Dates: start: 20090902, end: 20091127

REACTIONS (11)
  - ARTHRALGIA [None]
  - EYE PAIN [None]
  - FATIGUE [None]
  - HYPOAESTHESIA [None]
  - MENSTRUAL DISORDER [None]
  - NIGHT SWEATS [None]
  - PAIN IN EXTREMITY [None]
  - POLYMENORRHOEA [None]
  - POSTNASAL DRIP [None]
  - SLEEP TERROR [None]
  - TEMPOROMANDIBULAR JOINT SYNDROME [None]
